FAERS Safety Report 11080645 (Version 1)
Quarter: 2015Q2

REPORT INFORMATION
  Report Type: Spontaneous
  Country: US (occurrence: None)
  Receive Date: 20150430
  Receipt Date: 20150430
  Transmission Date: 20150821
  Serious: No
  Sender: FDA-Public Use
  Company Number: None

PATIENT
  Age: 37 Year
  Sex: Male
  Weight: 78.93 kg

DRUGS (8)
  1. VITAMIN B COMPLEX [Suspect]
     Active Substance: CYANOCOBALAMIN\DEXPANTHENOL\NIACINAMIDE\PYRIDOXINE HYDROCHLORIDE\RIBOFLAVIN 5^-PHOSPHATE SODIUM\THIAMINE HYDROCHLORIDE\VITAMIN B COMPLEX
  2. FENOFIBRATE. [Suspect]
     Active Substance: FENOFIBRATE
     Indication: LOW DENSITY LIPOPROTEIN INCREASED
     Route: 048
     Dates: start: 20150327, end: 20150429
  3. FISH OIL [Suspect]
     Active Substance: FISH OIL
  4. DAILY MULTIVITAMIN [Suspect]
     Active Substance: VITAMINS
  5. VITAMIN D3 [Suspect]
     Active Substance: CHOLECALCIFEROL
  6. FENOFIBRATE. [Suspect]
     Active Substance: FENOFIBRATE
     Indication: BLOOD TRIGLYCERIDES INCREASED
     Route: 048
     Dates: start: 20150327, end: 20150429
  7. LIPITOR [Suspect]
     Active Substance: ATORVASTATIN CALCIUM
  8. CO-Q10 [Concomitant]

REACTIONS (1)
  - Pruritus generalised [None]

NARRATIVE: CASE EVENT DATE: 20150426
